FAERS Safety Report 6014722-2 (Version None)
Quarter: 2008Q4

REPORT INFORMATION
  Report Type: 
  Country: None (occurrence: None)
  Receive Date: 20081219
  Receipt Date: 20081207
  Transmission Date: 20090506
  Serious: Yes (Hospitalization, Other)
  Sender: FDA-Public Use
  Company Number: US-PFIZER INC-2008154027

PATIENT
  Sex: Male
  Weight: 89.342 kg

DRUGS (1)
  1. CHANTIX [Suspect]
     Indication: SMOKING CESSATION THERAPY

REACTIONS (4)
  - ANEURYSM [None]
  - DIABETES MELLITUS [None]
  - FOOT OPERATION [None]
  - UNEVALUABLE EVENT [None]
